FAERS Safety Report 4721228-7 (Version None)
Quarter: 2005Q3

REPORT INFORMATION
  Report Type: 
  Country: None (occurrence: None)
  Receive Date: 20050720
  Receipt Date: 20050707
  Transmission Date: 20060218
  Serious: Yes (Hospitalization)
  Sender: FDA-Public Use
  Company Number: 2005098448

PATIENT
  Sex: Male

DRUGS (5)
  1. VIAGRA [Suspect]
     Indication: PULMONARY HYPERTENSION
     Dosage: 200 MG (100 MG, 2 IN 1 D) ORAL
     Route: 048
     Dates: start: 20010101
  2. FUROSEMIDE [Concomitant]
  3. ZAROXOLYN [Concomitant]
  4. WARFARIN SODIUM [Concomitant]
  5. SPIRONOLAKTON ^ACO^ [Concomitant]

REACTIONS (3)
  - AMNESIA [None]
  - CONFUSIONAL STATE [None]
  - DISORIENTATION [None]
